FAERS Safety Report 5374772-6 (Version None)
Quarter: 2007Q2

REPORT INFORMATION
  Report Type: 
  Country: None (occurrence: None)
  Receive Date: 20070629
  Receipt Date: 20070619
  Transmission Date: 20071010
  Serious: Yes (Other)
  Sender: FDA-Public Use
  Company Number: GBWYE755620JUN06

PATIENT
  Sex: Female

DRUGS (5)
  1. EFFEXOR XR [Suspect]
     Indication: DEPRESSION
     Dosage: 150MG EVERY MORNING
     Route: 048
     Dates: start: 20031014, end: 20060625
  2. FLUPENTIXOL [Concomitant]
     Indication: ANXIETY
     Route: 048
     Dates: start: 20031014
  3. FLUPENTIXOL [Concomitant]
     Indication: AGITATION
  4. PROMAZINE HYDROCHLORIDE [Concomitant]
     Indication: RESTLESSNESS
     Dosage: 25MG AS REQUIRED
     Route: 048
     Dates: start: 20040804
  5. PROMAZINE HYDROCHLORIDE [Concomitant]
     Indication: AGITATION

REACTIONS (1)
  - ALOPECIA [None]
